FAERS Safety Report 9227456 (Version 1)
Quarter: 2013Q2

REPORT INFORMATION
  Report Type: Spontaneous
  Country: FR (occurrence: FR)
  Receive Date: 20130412
  Receipt Date: 20130412
  Transmission Date: 20140414
  Serious: Yes (Death)
  Sender: FDA-Public Use
  Company Number: PHHY2013FR035291

PATIENT
  Age: 63 Year
  Sex: Male
  Weight: 78 kg

DRUGS (8)
  1. LEPONEX [Suspect]
     Dosage: 450 MG, (200 + 250 MG, DAILY IN TWO TIMES)
     Route: 048
  2. THERALENE [Suspect]
     Dosage: 40 MG, QD
     Route: 048
  3. NOZINAN /NET/ [Suspect]
     Dosage: 15 MG, TID
     Route: 048
  4. PHENERGAN /00404701/ [Suspect]
     Dosage: UNK
     Route: 048
     Dates: end: 20130227
  5. LEPTICUR [Suspect]
     Dosage: 10 MG, QD
     Route: 048
  6. TRILEPTAL [Concomitant]
  7. XATRAL [Concomitant]
  8. DEPAKOTE [Concomitant]

REACTIONS (4)
  - Toxic dilatation of intestine [Fatal]
  - Intestinal obstruction [Fatal]
  - C-reactive protein increased [Unknown]
  - Renal failure acute [Unknown]
